FAERS Safety Report 9647982 (Version 1)
Quarter: 2013Q4

REPORT INFORMATION
  Report Type: Spontaneous
  Country: US (occurrence: US)
  Receive Date: 20131028
  Receipt Date: 20131028
  Transmission Date: 20140711
  Serious: No
  Sender: FDA-Public Use
  Company Number: US-PFIZER INC-2013303936

PATIENT
  Age: 68 Year
  Sex: Male
  Weight: 131.52 kg

DRUGS (2)
  1. NEURONTIN [Suspect]
     Indication: PAROSMIA
     Dosage: 800 MG (FOUR 100MG DURING DAY TIME AND 400MG CAPSULE AT BED TIME),1X/DAY
     Route: 048
  2. AMITRIPTYLINE [Concomitant]
     Indication: DEPRESSION
     Dosage: UNK

REACTIONS (8)
  - Off label use [Unknown]
  - Back disorder [Unknown]
  - General physical health deterioration [Unknown]
  - Parosmia [Unknown]
  - Therapeutic response unexpected [Unknown]
  - Pain [Unknown]
  - Back pain [Unknown]
  - Panic reaction [Unknown]
